FAERS Safety Report 10634914 (Version 2)
Quarter: 2014Q4

REPORT INFORMATION
  Report Type: Spontaneous
  Country: DE (occurrence: DE)
  Receive Date: 20141205
  Receipt Date: 20141217
  Transmission Date: 20150529
  Serious: Yes (Congenital Anomaly)
  Sender: FDA-Public Use
  Company Number: PHHY2014DE156289

PATIENT
  Sex: Male
  Weight: .47 kg

DRUGS (13)
  1. TACROLIMUS. [Suspect]
     Active Substance: TACROLIMUS
     Indication: PRODUCT USED FOR UNKNOWN INDICATION
     Dosage: FOETAL DRUG EXPOSURE VIA FATHER
     Route: 065
  2. MYFORTIC [Suspect]
     Active Substance: MYCOPHENOLATE SODIUM
     Indication: PRODUCT USED FOR UNKNOWN INDICATION
     Dosage: FOETAL DRUG EXPOSURE VIA FATHER
     Route: 065
  3. NULOJIX [Suspect]
     Active Substance: BELATACEPT
     Indication: PRODUCT USED FOR UNKNOWN INDICATION
     Dosage: FOETAL DRUG EXPOSURE VIA FATHER
     Route: 065
  4. LOSARTAN [Concomitant]
     Active Substance: LOSARTAN
     Indication: PRODUCT USED FOR UNKNOWN INDICATION
     Dosage: FOETAL DRUG EXPOSURE VIA FATHER
     Route: 065
  5. FLUVASTATIN [Concomitant]
     Active Substance: FLUVASTATIN SODIUM
     Indication: PRODUCT USED FOR UNKNOWN INDICATION
     Dosage: FOETAL DRUG EXPOSURE VIA FATHER
     Route: 065
  6. OMEPRAZOLE. [Concomitant]
     Active Substance: OMEPRAZOLE
     Indication: PRODUCT USED FOR UNKNOWN INDICATION
     Dosage: FOETAL DRUG EXPOSURE VIA FATHER
     Route: 065
  7. LOCOL [Concomitant]
     Active Substance: FLUVASTATIN SODIUM
     Dosage: FOETAL DRUG EXPOSURE VIA FATHER
     Route: 065
  8. ENALAPRIL [Concomitant]
     Active Substance: ENALAPRIL
     Indication: PRODUCT USED FOR UNKNOWN INDICATION
     Dosage: FOETAL DRUG EXPOSURE VIA FATHER
     Route: 065
  9. BISOPROLOL [Concomitant]
     Active Substance: BISOPROLOL
     Indication: PRODUCT USED FOR UNKNOWN INDICATION
     Dosage: FOETAL DRUG EXPOSURE VIA FATHER
     Route: 065
  10. DARBEPOETIN ALFA [Concomitant]
     Active Substance: DARBEPOETIN ALFA
     Indication: PRODUCT USED FOR UNKNOWN INDICATION
     Dosage: FOETAL DRUG EXPOSURE VIA FATHER
     Route: 065
  11. LORZAAR PROTECT [Concomitant]
     Dosage: FOETAL DRUG EXPOSURE VIA FATHER
     Route: 065
  12. BICANORM [Concomitant]
     Active Substance: SODIUM BICARBONATE
     Route: 065
  13. AMLODIPINE [Concomitant]
     Active Substance: AMLODIPINE BESYLATE
     Indication: PRODUCT USED FOR UNKNOWN INDICATION
     Dosage: FOETAL DRUG EXPOSURE VIA FATHER
     Route: 065

REACTIONS (2)
  - Skeletal dysplasia [Not Recovered/Not Resolved]
  - Gene mutation [Not Recovered/Not Resolved]
